FAERS Safety Report 8815537 (Version 1)
Quarter: 2012Q4

REPORT INFORMATION
  Report Type: 
  Country: ZA (occurrence: ZA)
  Receive Date: 20120928
  Receipt Date: 20120928
  Transmission Date: 20130627
  Serious: Yes (Other)
  Sender: FDA-Public Use
  Company Number: ZA-JNJFOC-20120802238

PATIENT
  Age: 18 Year
  Sex: Male

DRUGS (1)
  1. REVELLEX [Suspect]
     Indication: PRODUCT USED FOR UNKNOWN INDICATION
     Dosage: start of drug, from 2 years prior to the time of reporting
     Route: 042

REACTIONS (1)
  - Tuberculosis [Unknown]
